FAERS Safety Report 11838235 (Version 3)
Quarter: 2016Q1

REPORT INFORMATION
  Report Type: Spontaneous
  Country: JP (occurrence: JP)
  Receive Date: 20151215
  Receipt Date: 20160122
  Transmission Date: 20160525
  Serious: Yes (Other)
  Sender: FDA-Public Use
  Company Number: JP-TEVA-2015-JP-002577J

PATIENT
  Age: 85 Year
  Sex: Male
  Weight: 65 kg

DRUGS (3)
  1. NEO-MINOPHAGEN C [Concomitant]
     Active Substance: AMMONIUM GLYCYRRHIZATE
     Indication: URTICARIA
     Route: 065
     Dates: start: 20151201
  2. SAXIZON [Suspect]
     Active Substance: HYDROCORTISONE SODIUM SUCCINATE
     Indication: URTICARIA
     Dosage: 300 MILLIGRAM DAILY;
     Route: 041
     Dates: start: 20151201, end: 20151201
  3. CEFOTIAM [Concomitant]
     Active Substance: CEFOTIAM

REACTIONS (3)
  - Airway peak pressure increased [Unknown]
  - Anaphylactic shock [Recovered/Resolved]
  - Dyspnoea [Recovered/Resolved]

NARRATIVE: CASE EVENT DATE: 20151201
